FAERS Safety Report 25825315 (Version 1)
Quarter: 2025Q3

REPORT INFORMATION
  Report Type: Spontaneous
  Country: EU (occurrence: EU)
  Receive Date: 20250919
  Receipt Date: 20250919
  Transmission Date: 20251021
  Serious: Yes (Other)
  Sender: AMGEN
  Company Number: EU-AMGEN-BGRSP2025181097

PATIENT
  Age: 61 Year
  Sex: Male

DRUGS (8)
  1. XGEVA [Suspect]
     Active Substance: DENOSUMAB
     Indication: Triple positive breast cancer
     Route: 065
     Dates: start: 202012
  2. XGEVA [Suspect]
     Active Substance: DENOSUMAB
     Indication: Metastases to bone
  3. TRASTUZUMAB [Suspect]
     Active Substance: TRASTUZUMAB
     Indication: Hormone receptor negative HER2 positive breast cancer
     Route: 065
  4. TRASTUZUMAB [Suspect]
     Active Substance: TRASTUZUMAB
     Indication: Invasive ductal breast carcinoma
  5. PALBOCICLIB [Concomitant]
     Active Substance: PALBOCICLIB
     Indication: Triple positive breast cancer
     Route: 065
     Dates: start: 202012
  6. FULVESTRANT [Concomitant]
     Active Substance: FULVESTRANT
     Indication: Triple positive breast cancer
     Route: 065
     Dates: start: 202012
  7. PERTUZUMAB [Concomitant]
     Active Substance: PERTUZUMAB
     Indication: Hormone receptor negative HER2 positive breast cancer
     Route: 065
  8. DOCETAXEL [Concomitant]
     Active Substance: DOCETAXEL
     Indication: Hormone receptor negative HER2 positive breast cancer
     Route: 065

REACTIONS (6)
  - Triple positive breast cancer [Unknown]
  - Metastases to liver [Recovering/Resolving]
  - Metastases to lung [Unknown]
  - Metastases to lymph nodes [Recovering/Resolving]
  - Therapy partial responder [Unknown]
  - Off label use [Unknown]
